FAERS Safety Report 25284990 (Version 6)
Quarter: 2025Q4

REPORT INFORMATION
  Report Type: Report from Study
  Country: EU (occurrence: EU)
  Receive Date: 20250508
  Receipt Date: 20251124
  Transmission Date: 20260118
  Serious: Yes (Hospitalization, Other)
  Sender: ABBVIE
  Company Number: EU-ABBVIE-6268178

PATIENT
  Age: 61 Year
  Sex: Male

DRUGS (6)
  1. FOSCARBIDOPA\FOSLEVODOPA [Suspect]
     Active Substance: FOSCARBIDOPA\FOSLEVODOPA
     Indication: Parkinson^s disease
     Dosage: SD: 0.60 ML, CRN: 0.48 ML/H, CR: 0.68 ML/H, CRH: 0.78 ML/H, ED: 0.30 ML
     Route: 058
     Dates: start: 20241202
  2. FOSCARBIDOPA\FOSLEVODOPA [Suspect]
     Active Substance: FOSCARBIDOPA\FOSLEVODOPA
     Dosage: CR: 0.40 ML/H CRH: 0.42 ML/H CRN: 0.38 ML/H ED: 0.15 ML/1H
     Route: 058
  3. FOSCARBIDOPA\FOSLEVODOPA [Suspect]
     Active Substance: FOSCARBIDOPA\FOSLEVODOPA
     Dosage: CR: 0.30 ML/H CRH: 0.33 ML/H CRN: 0.29 ML/H ED: 0.15 ML, DOSAGE DECREASED
     Route: 058
  4. FOSCARBIDOPA\FOSLEVODOPA [Suspect]
     Active Substance: FOSCARBIDOPA\FOSLEVODOPA
     Dosage: DOSES: CRN: 0.23 ML/H; CR: 0.24 ML/H; CRH: 0.25 ML/H; ED: 0.15 ML
     Route: 058
  5. FOSCARBIDOPA\FOSLEVODOPA [Suspect]
     Active Substance: FOSCARBIDOPA\FOSLEVODOPA
     Dosage: CR:0.36ML/H CRH:0.38ML/H CRN:0.32ML/H
     Route: 058
  6. FOSCARBIDOPA\FOSLEVODOPA [Suspect]
     Active Substance: FOSCARBIDOPA\FOSLEVODOPA
     Dosage: DOSAGE-CR: 036ML/H CRH: 0.37ML/H CRN: 0.35ML/H
     Route: 058

REACTIONS (22)
  - Feeling abnormal [Not Recovered/Not Resolved]
  - Malaise [Unknown]
  - Metamorphopsia [Not Recovered/Not Resolved]
  - Loss of personal independence in daily activities [Not Recovered/Not Resolved]
  - Unevaluable event [Not Recovered/Not Resolved]
  - Movement disorder [Not Recovered/Not Resolved]
  - Hypoaesthesia oral [Not Recovered/Not Resolved]
  - Gait disturbance [Not Recovered/Not Resolved]
  - Paraesthesia [Not Recovered/Not Resolved]
  - Therapeutic product effect incomplete [Not Recovered/Not Resolved]
  - Fine motor skill dysfunction [Not Recovered/Not Resolved]
  - Infusion site induration [Recovered/Resolved]
  - Musculoskeletal disorder [Not Recovered/Not Resolved]
  - Infusion site hypertrophy [Not Recovered/Not Resolved]
  - Tremor [Recovered/Resolved]
  - Tremor [Not Recovered/Not Resolved]
  - Gait inability [Not Recovered/Not Resolved]
  - Mobility decreased [Not Recovered/Not Resolved]
  - On and off phenomenon [Not Recovered/Not Resolved]
  - Bladder catheterisation [Not Recovered/Not Resolved]
  - Urinary tract obstruction [Not Recovered/Not Resolved]
  - Prostatomegaly [Not Recovered/Not Resolved]

NARRATIVE: CASE EVENT DATE: 20250101
